FAERS Safety Report 24313945 (Version 1)
Quarter: 2024Q3

REPORT INFORMATION
  Report Type: Spontaneous
  Country: DE (occurrence: DE)
  Receive Date: 20240912
  Receipt Date: 20240912
  Transmission Date: 20241017
  Serious: Yes (Other)
  Sender: BOEHRINGER INGELHEIM
  Company Number: DE-BoehringerIngelheim-2024-BI-050254

PATIENT

DRUGS (9)
  1. NINTEDANIB [Suspect]
     Active Substance: NINTEDANIB
     Indication: Systemic scleroderma
     Dosage: MYCOPHENOLAT?MOFETIL (MMF)+NINTEDANIB ED?M4
  2. NINTEDANIB [Suspect]
     Active Substance: NINTEDANIB
     Indication: Interstitial lung disease
     Dosage: CYCLOPHOSPHAMID AND NINTEDANIB M5?M9
  3. NINTEDANIB [Suspect]
     Active Substance: NINTEDANIB
     Dosage: ROACTEMRA AND NINTEDANIB M9 ?
  4. MYCOPHENOLATE MOFETIL [Concomitant]
     Active Substance: MYCOPHENOLATE MOFETIL
     Indication: Systemic scleroderma
     Dosage: MYCOPHENOLAT?MOFETIL (MMF)+NINTEDANIB ED?M4
  5. MYCOPHENOLATE MOFETIL [Concomitant]
     Active Substance: MYCOPHENOLATE MOFETIL
     Indication: Interstitial lung disease
  6. CYCLOPHOSPHAMIDE [Concomitant]
     Active Substance: CYCLOPHOSPHAMIDE
     Indication: Systemic scleroderma
     Dosage: CYCLOPHOSPHAMID AND NINTEDANIB M5?M9
  7. CYCLOPHOSPHAMIDE [Concomitant]
     Active Substance: CYCLOPHOSPHAMIDE
     Indication: Interstitial lung disease
  8. TOCILIZUMAB [Concomitant]
     Active Substance: TOCILIZUMAB
     Indication: Systemic scleroderma
     Dosage: ROACTEMRA AND NINTEDANIB M9 ?
  9. TOCILIZUMAB [Concomitant]
     Active Substance: TOCILIZUMAB
     Indication: Interstitial lung disease

REACTIONS (2)
  - Disease progression [Unknown]
  - Drug ineffective [Unknown]
